FAERS Safety Report 16044694 (Version 2)
Quarter: 2019Q1

REPORT INFORMATION
  Report Type: Spontaneous
  Country: JP (occurrence: JP)
  Receive Date: 20190306
  Receipt Date: 20190331
  Transmission Date: 20190418
  Serious: Yes (Other)
  Sender: FDA-Public Use
  Company Number: PHHY2018JP176128

PATIENT
  Age: 74 Year
  Sex: Male

DRUGS (2)
  1. COSENTYX [Suspect]
     Active Substance: SECUKINUMAB
     Indication: PSORIASIS
     Dosage: UNK
     Route: 065
  2. VITAMIN D [Concomitant]
     Active Substance: CHOLECALCIFEROL
     Indication: PSORIASIS
     Dosage: UNK
     Route: 065

REACTIONS (9)
  - Hyperkeratosis [Unknown]
  - Erythema [Unknown]
  - Skin exfoliation [Unknown]
  - Monocyte count increased [Unknown]
  - Oedema [Unknown]
  - Lymphocytic infiltration [Unknown]
  - Pityriasis rubra pilaris [Unknown]
  - Rash papular [Unknown]
  - Acanthosis [Unknown]

NARRATIVE: CASE EVENT DATE: 20160530
